FAERS Safety Report 10531316 (Version 3)
Quarter: 2014Q4

REPORT INFORMATION
  Report Type: Spontaneous
  Country: FR (occurrence: FR)
  Receive Date: 20141021
  Receipt Date: 20141105
  Transmission Date: 20150529
  Serious: Yes (Hospitalization)
  Sender: FDA-Public Use
  Company Number: FR-PFIZER INC-2014283863

PATIENT
  Age: 59 Year
  Sex: Male

DRUGS (55)
  1. PREVISCAN [Suspect]
     Active Substance: FLUINDIONE
     Dosage: UNK
     Dates: start: 201405
  2. PREVISCAN [Suspect]
     Active Substance: FLUINDIONE
     Dosage: 2 DF, DAILY
     Dates: start: 20140604, end: 20140606
  3. CANCIDAS [Suspect]
     Active Substance: CASPOFUNGIN ACETATE
     Dosage: UNK
     Dates: start: 20140327, end: 20140408
  4. HEPARIN SODIUM. [Suspect]
     Active Substance: HEPARIN SODIUM
     Dosage: UNK
     Route: 058
     Dates: start: 20140209, end: 20140304
  5. CRESTOR [Concomitant]
     Active Substance: ROSUVASTATIN CALCIUM
     Dosage: 1 DF, 1X/DAY
  6. FUNGIZONE [Concomitant]
     Active Substance: AMPHOTERICIN B
     Dosage: UNK
     Dates: start: 20140327, end: 20140408
  7. TOBRAMYCIN. [Concomitant]
     Active Substance: TOBRAMYCIN
     Dosage: UNK
     Dates: start: 20140501, end: 20140504
  8. VERAPAMIL [Concomitant]
     Active Substance: VERAPAMIL HYDROCHLORIDE
     Dosage: UNK
     Dates: start: 20140531
  9. MERONEM [Suspect]
     Active Substance: MEROPENEM
     Dosage: UNK
     Dates: start: 20140327, end: 20140410
  10. PREVISCAN [Suspect]
     Active Substance: FLUINDIONE
     Dosage: 1 DF, DAILY
     Dates: start: 20140527
  11. PREVISCAN [Suspect]
     Active Substance: FLUINDIONE
     Dosage: 1.25 DF, UNK
     Dates: end: 20140604
  12. ECONAZOLE [Concomitant]
     Active Substance: ECONAZOLE
     Dosage: UNK
     Dates: start: 20140228, end: 201406
  13. AMIKLIN [Concomitant]
     Active Substance: AMIKACIN SULFATE
     Dosage: UNK
     Dates: start: 20140531, end: 20140601
  14. NEOSYNEPHRINE [Concomitant]
     Active Substance: PHENYLEPHRINE HYDROCHLORIDE
     Dosage: UNK
     Dates: start: 201405
  15. CIFLOX [Suspect]
     Active Substance: CIPROFLOXACIN
     Indication: BACTERIAL SEPSIS
     Dosage: UNK
     Route: 042
     Dates: start: 20140213, end: 20140306
  16. MERONEM [Suspect]
     Active Substance: MEROPENEM
     Dosage: UNK
     Route: 042
     Dates: start: 20140310, end: 20140320
  17. MERONEM [Suspect]
     Active Substance: MEROPENEM
     Dosage: UNK
     Dates: start: 20140531, end: 20140615
  18. PREVISCAN [Suspect]
     Active Substance: FLUINDIONE
     Dosage: 2.25 DF, DAILY
     Dates: start: 20140606, end: 20140610
  19. TARGOCID [Suspect]
     Active Substance: TEICOPLANIN
     Indication: BACTERIAL SEPSIS
     Dosage: UNK
     Route: 042
     Dates: start: 20140310, end: 20140320
  20. ISOPTINE LP [Concomitant]
     Active Substance: VERAPAMIL HYDROCHLORIDE
     Dosage: 240 MG, 2X/DAY
  21. SONDALIS [Concomitant]
     Active Substance: UNSPECIFIED INGREDIENT
  22. TRIFLUCAN [Concomitant]
     Active Substance: FLUCONAZOLE
     Dosage: UNK
     Dates: start: 20140417, end: 20140516
  23. ZYVOXID [Suspect]
     Active Substance: LINEZOLID
     Indication: BACTERIAL SEPSIS
     Dosage: UNK
     Route: 042
     Dates: start: 20140208, end: 20140306
  24. CIFLOX [Suspect]
     Active Substance: CIPROFLOXACIN
     Dosage: UNK
     Dates: start: 20140602, end: 20140615
  25. PREVISCAN [Suspect]
     Active Substance: FLUINDIONE
     Indication: ATRIAL FIBRILLATION
     Dosage: 0.75 DF, 1X/DAY ON EVEN DAYS AND 1 DF, 1X/DAY ON ODD DAYS
     Route: 048
     Dates: start: 20140301, end: 20140328
  26. RIFADINE [Suspect]
     Active Substance: RIFAMPIN
     Indication: BACTERIAL SEPSIS
     Dosage: UNK
     Dates: start: 20140310, end: 20140320
  27. LASILIX [Concomitant]
     Active Substance: FUROSEMIDE
     Dosage: 80 MG, 1X/DAY
  28. STAGID [Concomitant]
     Active Substance: METFORMIN PAMOATE
     Dosage: 500 MG, 2X/DAY
  29. FLUCONAZOLE. [Concomitant]
     Active Substance: FLUCONAZOLE
     Dosage: UNK
     Dates: start: 20140320, end: 20140327
  30. VANCOMYCIN [Concomitant]
     Active Substance: VANCOMYCIN
     Dosage: UNK
     Dates: start: 20140503, end: 20140506
  31. ZYVOXID [Suspect]
     Active Substance: LINEZOLID
     Dosage: UNK
     Dates: start: 20140506, end: 20140527
  32. MERONEM [Suspect]
     Active Substance: MEROPENEM
     Indication: BACTERIAL SEPSIS
     Dosage: UNK
     Route: 042
     Dates: start: 20140213, end: 20140306
  33. MERONEM [Suspect]
     Active Substance: MEROPENEM
     Dosage: UNK
     Dates: start: 20140501, end: 20140515
  34. CANCIDAS [Suspect]
     Active Substance: CASPOFUNGIN ACETATE
     Dosage: UNK
     Route: 042
     Dates: start: 20140327, end: 20140408
  35. SPIRIVA [Concomitant]
     Active Substance: TIOTROPIUM BROMIDE MONOHYDRATE
     Dosage: 1 DF, 1X/DAY
  36. DOLIPRANE [Concomitant]
     Active Substance: ACETAMINOPHEN
     Dosage: UNK
  37. APROVEL [Concomitant]
     Active Substance: IRBESARTAN
     Dosage: 300 MG, 1X/DAY
  38. AMIKLIN [Concomitant]
     Active Substance: AMIKACIN SULFATE
     Dosage: UNK
     Dates: start: 20140501, end: 20140504
  39. PIPERACILLIN, TAZOBACTAM [Concomitant]
     Active Substance: PIPERACILLIN SODIUM\TAZOBACTAM SODIUM
     Dosage: UNK
     Dates: start: 20140509, end: 20140531
  40. AMIODARONE [Concomitant]
     Active Substance: AMIODARONE
     Dosage: UNK
     Dates: start: 20140531
  41. ZYVOXID [Suspect]
     Active Substance: LINEZOLID
     Dosage: UNK
     Dates: start: 20140327, end: 20140410
  42. HEPARIN SODIUM. [Suspect]
     Active Substance: HEPARIN SODIUM
     Dosage: UNK
     Dates: start: 20140419, end: 201405
  43. COUMADINE [Concomitant]
     Active Substance: WARFARIN SODIUM
     Dosage: UNK
     Dates: start: 20140616
  44. PREVISCAN [Suspect]
     Active Substance: FLUINDIONE
     Dosage: UNK
     Dates: start: 20140401, end: 20140414
  45. PREVISCAN [Suspect]
     Active Substance: FLUINDIONE
     Dosage: 1.75 DF, DAILY
     Dates: start: 20140612, end: 20140616
  46. HEPARIN SODIUM. [Suspect]
     Active Substance: HEPARIN SODIUM
     Dosage: UNK
     Dates: end: 20140610
  47. TOPALGIC [Concomitant]
     Active Substance: TRAMADOL
     Dosage: 1 DF, 2X/DAY
  48. MYCAMINE [Concomitant]
     Active Substance: MICAFUNGIN SODIUM
     Dosage: UNK
     Dates: start: 20140503, end: 20140515
  49. PREVISCAN [Suspect]
     Active Substance: FLUINDIONE
     Dosage: 2 DF, DAILY
     Dates: start: 20140610, end: 20140612
  50. CANCIDAS [Suspect]
     Active Substance: CASPOFUNGIN ACETATE
     Indication: BACTERIAL SEPSIS
     Dosage: UNK
     Route: 042
     Dates: start: 20140310, end: 20140320
  51. SYMBICORT [Concomitant]
     Active Substance: BUDESONIDE\FORMOTEROL FUMARATE DIHYDRATE
     Dosage: 400 MG, 2X/DAY
  52. ANCOTIL [Concomitant]
     Active Substance: FLUCYTOSINE
     Dosage: UNK
     Dates: start: 20140327, end: 20140408
  53. MYCAMINE [Concomitant]
     Active Substance: MICAFUNGIN SODIUM
     Dosage: UNK
     Dates: end: 20140615
  54. NOREPINEPHRINE [Concomitant]
     Active Substance: NOREPINEPHRINE\NOREPINEPHRINE BITARTRATE
     Dosage: UNK
     Dates: start: 201405
  55. DOBUTAMINE [Concomitant]
     Active Substance: DOBUTAMINE\DOBUTAMINE HYDROCHLORIDE
     Dosage: UNK
     Dates: start: 201405

REACTIONS (2)
  - Dermatitis exfoliative [Recovered/Resolved]
  - Urticaria [Recovered/Resolved]

NARRATIVE: CASE EVENT DATE: 20140303
